FAERS Safety Report 22124908 (Version 10)
Quarter: 2024Q3

REPORT INFORMATION
  Report Type: Spontaneous
  Country: US (occurrence: US)
  Receive Date: 20230322
  Receipt Date: 20240715
  Transmission Date: 20241016
  Serious: Yes (Other)
  Sender: VERTEX
  Company Number: US-VERTEX PHARMACEUTICALS-2023-003850

PATIENT
  Age: 19 Year
  Sex: Female

DRUGS (5)
  1. TRIKAFTA [Suspect]
     Active Substance: ELEXACAFTOR\IVACAFTOR\TEZACAFTOR
     Indication: Cystic fibrosis
     Dosage: UNK FREQ
     Route: 048
     Dates: start: 202106
  2. TRIKAFTA [Suspect]
     Active Substance: ELEXACAFTOR\IVACAFTOR\TEZACAFTOR
     Dosage: REMOVE MORNING PILLS, TAKING SOME AT NIGHT
     Route: 048
  3. TRIKAFTA [Suspect]
     Active Substance: ELEXACAFTOR\IVACAFTOR\TEZACAFTOR
     Dosage: IRREGULAR, DOSE AS LOW AS POSSIBLE
     Route: 048
  4. TRIKAFTA [Suspect]
     Active Substance: ELEXACAFTOR\IVACAFTOR\TEZACAFTOR
     Dosage: FULL DOSE
     Route: 048
  5. TRIKAFTA [Suspect]
     Active Substance: ELEXACAFTOR\IVACAFTOR\TEZACAFTOR
     Dosage: ONE A DAY NOW
     Route: 048

REACTIONS (43)
  - Disorientation [Not Recovered/Not Resolved]
  - Vertigo [Not Recovered/Not Resolved]
  - Pancreatitis [Unknown]
  - Affective disorder [Unknown]
  - Amnesia [Unknown]
  - Disturbance in attention [Not Recovered/Not Resolved]
  - Hyperphagia [Not Recovered/Not Resolved]
  - Mental disorder [Not Recovered/Not Resolved]
  - Brain fog [Not Recovered/Not Resolved]
  - Nausea [Unknown]
  - Gastrointestinal pain [Unknown]
  - Back pain [Unknown]
  - Gallbladder disorder [Unknown]
  - Gastrointestinal obstruction [Unknown]
  - Bradyphrenia [Not Recovered/Not Resolved]
  - Hypoacusis [Unknown]
  - Nightmare [Not Recovered/Not Resolved]
  - Sleep terror [Not Recovered/Not Resolved]
  - Slow speech [Not Recovered/Not Resolved]
  - Thought blocking [Not Recovered/Not Resolved]
  - Staring [Unknown]
  - Anger [Unknown]
  - Anxiety [Not Recovered/Not Resolved]
  - Regurgitation [Not Recovered/Not Resolved]
  - Memory impairment [Not Recovered/Not Resolved]
  - Anxiety [Not Recovered/Not Resolved]
  - Insomnia [Recovered/Resolved]
  - Stress [Not Recovered/Not Resolved]
  - Aphasia [Not Recovered/Not Resolved]
  - Panic disorder [Not Recovered/Not Resolved]
  - Dyspnoea [Not Recovered/Not Resolved]
  - Feeling guilty [Not Recovered/Not Resolved]
  - Impaired work ability [Not Recovered/Not Resolved]
  - Lack of satiety [Not Recovered/Not Resolved]
  - Gait disturbance [Not Recovered/Not Resolved]
  - Posture abnormal [Not Recovered/Not Resolved]
  - Asthenia [Not Recovered/Not Resolved]
  - Appetite disorder [Not Recovered/Not Resolved]
  - Confusional state [Not Recovered/Not Resolved]
  - Depressed mood [Not Recovered/Not Resolved]
  - Depression [Unknown]
  - Abdominal distension [Not Recovered/Not Resolved]
  - Abdominal pain [Not Recovered/Not Resolved]

NARRATIVE: CASE EVENT DATE: 20210101
